FAERS Safety Report 5390242-3 (Version None)
Quarter: 2007Q3

REPORT INFORMATION
  Report Type: 
  Country: None (occurrence: None)
  Receive Date: 20070716
  Receipt Date: 20061017
  Transmission Date: 20080115
  Serious: Yes (Hospitalization)
  Sender: FDA-Public Use
  Company Number: MPS1-10598

PATIENT
  Age: 4 Year
  Sex: Male
  Weight: 15.75 kg

DRUGS (1)
  1. ALDURAZYME [Suspect]
     Indication: MUCOPOLYSACCHARIDOSIS I
     Dosage: 1500 UNITS 1XW IV
     Route: 042
     Dates: start: 20050304

REACTIONS (2)
  - VIRAL INFECTION [None]
  - VOMITING [None]
